FAERS Safety Report 9067178 (Version 3)
Quarter: 2013Q3

REPORT INFORMATION
  Report Type: Spontaneous
  Country: US (occurrence: US)
  Receive Date: 20130214
  Receipt Date: 20130801
  Transmission Date: 20140515
  Serious: Yes (Hospitalization)
  Sender: FDA-Public Use
  Company Number: US-UCBSA-077973

PATIENT
  Age: 71 Year
  Sex: Male

DRUGS (7)
  1. VIMPAT [Suspect]
     Indication: COMPLEX PARTIAL SEIZURES
     Route: 048
     Dates: end: 20130204
  2. VIMPAT [Suspect]
     Indication: COMPLEX PARTIAL SEIZURES
     Route: 048
     Dates: start: 20120918
  3. KEPPRA [Concomitant]
     Indication: COMPLEX PARTIAL SEIZURES
     Dosage: DOSE: 1500 MG IN AM AND 2000 IN PM
     Route: 048
     Dates: start: 201107
  4. LOVASTATIN [Concomitant]
     Indication: BLOOD CHOLESTEROL
  5. ISOSORBIDE MONONITRATE [Concomitant]
     Dosage: DOSE: 60 MG
  6. GLYBURIDE [Concomitant]
     Indication: BLOOD GLUCOSE
     Dosage: UNKNOWN DOSE
  7. TORSEMIDE [Concomitant]
     Indication: BLOOD PRESSURE

REACTIONS (1)
  - Pneumonia [Recovered/Resolved]
